FAERS Safety Report 8653952 (Version 2)
Quarter: 2012Q4

REPORT INFORMATION
  Report Type: Report from Study
  Country: CA (occurrence: CA)
  Receive Date: 20120709
  Receipt Date: 20120828
  Transmission Date: 20130627
  Serious: Yes (Other)
  Sender: FDA-Public Use
  Company Number: CA-JNJFOC-20120700880

PATIENT
  Age: 75 Year
  Sex: Female
  Weight: 41.3 kg

DRUGS (8)
  1. REMICADE [Suspect]
     Indication: CROHN^S DISEASE
     Route: 042
     Dates: start: 20120629
  2. REMICADE [Suspect]
     Indication: CROHN^S DISEASE
     Route: 042
     Dates: start: 2008
  3. SALBUTAMOL [Concomitant]
     Route: 065
  4. SPIRIVA [Concomitant]
     Route: 065
  5. LEVOTHYROXINE [Concomitant]
     Route: 065
  6. ADVAIR [Concomitant]
     Route: 065
  7. NEXIUM [Concomitant]
     Route: 065
  8. MORPHINE [Concomitant]
     Indication: PAIN
     Route: 065

REACTIONS (6)
  - Cough [Recovered/Resolved]
  - Fall [Recovered/Resolved]
  - Chest discomfort [Recovered/Resolved]
  - Infusion related reaction [Recovered/Resolved]
  - Wrist fracture [Recovered/Resolved]
  - Dizziness [Recovered/Resolved]
